FAERS Safety Report 5297597-9 (Version None)
Quarter: 2007Q2

REPORT INFORMATION
  Report Type: 
  Country: None (occurrence: None)
  Receive Date: 20070416
  Receipt Date: 20070404
  Transmission Date: 20071010
  Serious: Yes (Hospitalization)
  Sender: FDA-Public Use
  Company Number: FR-ROCHE-457512

PATIENT
  Age: 56 Year
  Sex: Female

DRUGS (38)
  1. DACLIZUMAB [Suspect]
     Route: 042
     Dates: start: 20050501, end: 20050501
  2. DACLIZUMAB [Suspect]
     Route: 042
     Dates: start: 20050508, end: 20050508
  3. MYCOPHENOLATE MOFETIL [Suspect]
     Route: 048
     Dates: start: 20050502, end: 20060428
  4. MYCOPHENOLATE MOFETIL [Suspect]
     Route: 042
     Dates: start: 20050501, end: 20050501
  5. TACROLIMUS [Suspect]
     Dosage: ADJUSTMENT TO REACH PREDEFINED TARGET LEVELS
     Route: 048
     Dates: start: 20050506, end: 20060428
  6. METHYLPREDNISOLONE 16MG TAB [Suspect]
     Dosage: TAPER ACCORDING TO LOCAL PROTOCOL.
     Route: 065
     Dates: start: 20050501, end: 20050510
  7. PREDNISONE TAB [Suspect]
     Dosage: TAPER ACCORDING TO LOCAL PROTOCOL.
     Route: 065
     Dates: start: 20050511, end: 20060428
  8. PIPERILLINE [Concomitant]
     Indication: PROPHYLAXIS
     Dates: start: 20050501, end: 20050505
  9. BACTRIM [Concomitant]
     Indication: PROPHYLAXIS
     Dates: start: 20050502, end: 20050830
  10. FLAGYL [Concomitant]
     Dates: start: 20050512, end: 20050530
  11. CYMEVAN [Concomitant]
     Dates: start: 20050502, end: 20050509
  12. TRIFLUCAN [Concomitant]
     Dates: start: 20050601, end: 20050610
  13. SUFENTA [Concomitant]
     Indication: SEDATION
     Dates: start: 20050501, end: 20050506
  14. HYPNOVEL [Concomitant]
     Indication: SEDATION
     Dates: start: 20050501, end: 20050506
  15. PERFALGAN [Concomitant]
     Indication: ABDOMINAL PAIN
     Dates: start: 20050523, end: 20050523
  16. OMEPRAZOLE [Concomitant]
     Indication: PROPHYLAXIS
     Dates: start: 20050501, end: 20050506
  17. ROVALCYTE [Concomitant]
     Dates: start: 20050510, end: 20050801
  18. INIPOMP [Concomitant]
     Indication: PROPHYLAXIS
     Dates: start: 20050507
  19. INSULINE [Concomitant]
     Dosage: STOPPED ON 4 MAY 2005, RESTARTED ON 15 MAY 2005
     Dates: start: 20050501, end: 20050518
  20. CORDARONE [Concomitant]
     Indication: TACHYCARDIA
     Dates: start: 20050503
  21. HEPARIN [Concomitant]
     Indication: THROMBOSIS PROPHYLAXIS
     Dates: start: 20050502, end: 20050519
  22. FRAXIPARINE [Concomitant]
     Indication: THROMBOSIS PROPHYLAXIS
     Dates: start: 20050520, end: 20050603
  23. ASPEGIC 1000 [Concomitant]
     Indication: THROMBOSIS PROPHYLAXIS
     Dates: start: 20050610, end: 20051105
  24. BURINEX [Concomitant]
     Dates: start: 20050502, end: 20050516
  25. LOXEN [Concomitant]
     Dates: start: 20050505, end: 20050514
  26. AMLOR [Concomitant]
     Dates: start: 20050505, end: 20050514
  27. HALDOL [Concomitant]
     Dates: start: 20050514, end: 20050515
  28. FRUCTOSE [Concomitant]
     Indication: LAXATIVE SUPPORTIVE CARE
     Dosage: FRUCTOSE.GALACTOSE
     Dates: start: 20050518, end: 20050603
  29. POTASSIUM CHLORIDE [Concomitant]
     Indication: HYPOKALAEMIA
     Dates: start: 20050520, end: 20050530
  30. DUPHALAC [Concomitant]
     Indication: CONSTIPATION
     Dates: start: 20050518, end: 20050531
  31. MAGNE B6 [Concomitant]
     Indication: ANAEMIA
     Dates: start: 20050520, end: 20060609
  32. IMODIUM [Concomitant]
     Indication: DIARRHOEA
     Dates: start: 20050523, end: 20050602
  33. FRAXIPARINE [Concomitant]
     Dates: start: 20051109, end: 20051205
  34. ASPEGIC 1000 [Concomitant]
     Dates: start: 20051206
  35. DEXAMETHASONE [Concomitant]
     Indication: EXTUBATION
     Dates: start: 20050507, end: 20050507
  36. KAYEXALATE [Concomitant]
     Indication: NAUSEA
     Dates: start: 20050509, end: 20050509
  37. ZOPHREN [Concomitant]
     Indication: NAUSEA
     Dates: start: 20050531, end: 20050609
  38. VITAMIN K [Concomitant]
     Dates: start: 20050505, end: 20050506

REACTIONS (1)
  - CYTOMEGALOVIRUS INFECTION [None]
